FAERS Safety Report 25585361 (Version 1)
Quarter: 2025Q3

REPORT INFORMATION
  Report Type: Spontaneous
  Country: US (occurrence: None)
  Receive Date: 20250718
  Receipt Date: 20250718
  Transmission Date: 20251021
  Serious: Yes (Hospitalization)
  Sender: FDA-CTU
  Company Number: None

PATIENT
  Age: 3 Year
  Sex: Male
  Weight: 13.8 kg

DRUGS (6)
  1. ZENPEP [Suspect]
     Active Substance: PANCRELIPASE AMYLASE\PANCRELIPASE LIPASE\PANCRELIPASE PROTEASE
     Indication: Pancreatic failure
     Route: 048
     Dates: start: 20231222
  2. ZENPEP [Suspect]
     Active Substance: PANCRELIPASE AMYLASE\PANCRELIPASE LIPASE\PANCRELIPASE PROTEASE
     Indication: Cystic fibrosis
  3. PULMOZYME 1MG/ML INH SOL 30 X 2.5ML [Concomitant]
  4. ALBUTEROL HFA INH (200 PUFFS) 6.7GM [Concomitant]
  5. ORKAMBI 75-94MG GRANULES [Concomitant]
  6. MVW PEDIATRIC DROPS [Concomitant]

REACTIONS (1)
  - Pseudomonas test positive [None]

NARRATIVE: CASE EVENT DATE: 20250708
